FAERS Safety Report 8564353-5 (Version None)
Quarter: 2012Q3

REPORT INFORMATION
  Report Type: 
  Country: None (occurrence: None)
  Receive Date: 20120803
  Receipt Date: 20120627
  Transmission Date: 20120928
  Serious: Yes (Hospitalization)
  Sender: FDA-Public Use
  Company Number: GB-JNJFOC-20120607908

PATIENT
  Sex: Male
  Weight: 116 kg

DRUGS (21)
  1. STELARA [Suspect]
     Route: 058
     Dates: start: 20110408
  2. GLICLAZIDE [Concomitant]
     Route: 065
     Dates: start: 20070601
  3. METFORMIN HYDROCHLORIDE [Concomitant]
     Route: 065
     Dates: start: 20070601
  4. STELARA [Suspect]
     Route: 058
     Dates: start: 20120330
  5. ADIZEM [Concomitant]
     Route: 065
     Dates: start: 20060919
  6. CLOPIDOGREL [Concomitant]
     Route: 065
     Dates: start: 20030327
  7. DIPROSALIC [Concomitant]
     Dates: start: 20100917
  8. NITROGLYCERIN [Concomitant]
     Route: 065
     Dates: start: 20070625
  9. RANITIDINE [Concomitant]
     Route: 065
     Dates: start: 20101102
  10. ASPIRIN [Concomitant]
     Route: 065
     Dates: start: 20030327
  11. STELARA [Suspect]
     Indication: PSORIASIS
     Route: 058
     Dates: start: 20101105
  12. STELARA [Suspect]
     Route: 058
     Dates: start: 20120518
  13. EZETIMIBE [Concomitant]
     Route: 065
     Dates: start: 20090522
  14. STELARA [Suspect]
     Route: 058
     Dates: start: 20120413
  15. DOVOBET [Concomitant]
     Route: 065
     Dates: start: 20101102
  16. EMOLLIENTS [Concomitant]
     Dates: start: 20100917
  17. ATORVASTATIN [Concomitant]
     Route: 065
     Dates: start: 20030327
  18. TRIMOVATE [Concomitant]
     Dates: start: 20100917
  19. STELARA [Suspect]
     Route: 058
     Dates: start: 20110509
  20. STELARA [Suspect]
     Route: 058
     Dates: start: 20101203
  21. RAMIPRIL [Concomitant]
     Route: 065
     Dates: start: 20030327

REACTIONS (1)
  - MYOCARDIAL INFARCTION [None]
